FAERS Safety Report 4549713-1 (Version None)
Quarter: 2005Q1

REPORT INFORMATION
  Report Type: 
  Country: None (occurrence: None)
  Receive Date: 20050110
  Receipt Date: 20041227
  Transmission Date: 20050727
  Serious: Yes (Other)
  Sender: FDA-Public Use
  Company Number: 2004058756

PATIENT
  Sex: Female

DRUGS (1)
  1. NEURONTIN [Suspect]
     Indication: NEUROPATHIC PAIN
     Dosage: 3200 MG (800 MG, 4 IN 1 D), ORAL
     Route: 048

REACTIONS (3)
  - DRUG INEFFECTIVE [None]
  - PHANTOM PAIN [None]
  - PHARMACEUTICAL PRODUCT COMPLAINT [None]
